FAERS Safety Report 18477979 (Version 1)
Quarter: 2020Q4

REPORT INFORMATION
  Report Type: Report from Study
  Country: None (occurrence: AR)
  Receive Date: 20201108
  Receipt Date: 20201108
  Transmission Date: 20210114
  Serious: Yes (Other)
  Sender: FDA-Public Use
  Company Number: AR-ABBVIE-20K-007-3642103-00

PATIENT
  Age: 59 Year
  Sex: Male

DRUGS (1)
  1. HUMIRA [Suspect]
     Active Substance: ADALIMUMAB
     Indication: UVEITIS
     Route: 058
     Dates: start: 20181101

REACTIONS (2)
  - Blindness unilateral [Not Recovered/Not Resolved]
  - Eye infection bacterial [Unknown]

NARRATIVE: CASE EVENT DATE: 20201007
